FAERS Safety Report 6404374-1 (Version None)
Quarter: 2009Q4

REPORT INFORMATION
  Report Type: 
  Country: None (occurrence: None)
  Receive Date: 20091013
  Receipt Date: 20090928
  Transmission Date: 20100525
  Serious: Yes (Hospitalization)
  Sender: FDA-Public Use
  Company Number: DSJ-2009-12614

PATIENT
  Age: 51 Year
  Sex: Male

DRUGS (3)
  1. OLMESARTAN MEDOXOMIL [Suspect]
     Indication: DRUG USE FOR UNKNOWN INDICATION
     Dosage: PER ORAL
     Route: 048
     Dates: start: 20080901, end: 20090101
  2. METHYLPREDNISOLONE 4MG TAB [Concomitant]
  3. PREDNISOLONE [Concomitant]

REACTIONS (7)
  - CARDIOVASCULAR DISORDER [None]
  - HYPERKALAEMIA [None]
  - LYMPHOCYTE STIMULATION TEST POSITIVE [None]
  - METABOLIC DISORDER [None]
  - OEDEMA [None]
  - ORTHOSTATIC HYPOTENSION [None]
  - PNEUMONIA [None]
